FAERS Safety Report 14980042 (Version 1)
Quarter: 2018Q2

REPORT INFORMATION
  Report Type: Spontaneous
  Country: US (occurrence: US)
  Receive Date: 20180606
  Receipt Date: 20180606
  Transmission Date: 20180711
  Serious: Yes (Other)
  Sender: FDA-Public Use
  Company Number: US-VIVIMED-2018SP004034

PATIENT

DRUGS (1)
  1. ZOLPIDEM [Suspect]
     Active Substance: ZOLPIDEM\ZOLPIDEM TARTRATE
     Indication: PRODUCT USED FOR UNKNOWN INDICATION
     Dosage: 10 MG, UNK
     Route: 048

REACTIONS (6)
  - Confusional state [Recovered/Resolved]
  - Automatism [Recovered/Resolved]
  - Accidental exposure to product [Unknown]
  - Abnormal behaviour [Recovered/Resolved]
  - Ataxia [Recovered/Resolved]
  - Amnesia [Recovered/Resolved]
